FAERS Safety Report 7464743-8 (Version None)
Quarter: 2011Q2

REPORT INFORMATION
  Report Type: 
  Country: None (occurrence: None)
  Receive Date: 20110509
  Receipt Date: 20110426
  Transmission Date: 20111010
  Serious: Yes (Hospitalization)
  Sender: FDA-Public Use
  Company Number: DE-ELI_LILLY_AND_COMPANY-DE201104007329

PATIENT
  Age: 73 Year
  Sex: Female

DRUGS (8)
  1. ANALGESICS [Concomitant]
     Indication: MUSCULOSKELETAL PAIN
  2. FORTEO [Suspect]
     Indication: OSTEOPOROSIS
     Dosage: UNK, QD
     Route: 058
     Dates: start: 20100419
  3. VITAMIN D [Concomitant]
  4. DIURETICS [Concomitant]
  5. CORTISONE [Concomitant]
  6. ALENDRONIC ACID [Concomitant]
     Dosage: UNK, WEEKLY (1/W)
  7. CODEINE [Concomitant]
     Dosage: 0.5 DF, QD
  8. CALCIUM [Concomitant]

REACTIONS (4)
  - HEPATIC ENZYME INCREASED [None]
  - DRUG DOSE OMISSION [None]
  - FATIGUE [None]
  - SOMNOLENCE [None]
